FAERS Safety Report 5416958-8 (Version None)
Quarter: 2007Q3

REPORT INFORMATION
  Report Type: 
  Country: None (occurrence: None)
  Receive Date: 20070816
  Receipt Date: 20070805
  Transmission Date: 20080115
  Serious: Yes (Other)
  Sender: FDA-Public Use
  Company Number: US-PFIZER INC-2007066200

PATIENT
  Sex: Female
  Weight: 85.7 kg

DRUGS (15)
  1. CHANTIX [Suspect]
     Indication: SMOKING CESSATION THERAPY
  2. PREDNISONE TAB [Suspect]
     Indication: PNEUMONIA
  3. HYDROXYZINE [Suspect]
     Indication: URTICARIA
  4. EPINEPHRINE [Concomitant]
  5. LIDODERM [Concomitant]
  6. ALPRAZOLAM [Concomitant]
  7. PHRENILIN [Concomitant]
  8. MORPHINE SULFATE [Concomitant]
  9. CRESTOR [Concomitant]
  10. CLONAZEPAM [Concomitant]
  11. EFFEXOR [Concomitant]
  12. MSIR [Concomitant]
  13. TOPAMAX [Concomitant]
  14. ESTRADIOL [Concomitant]
  15. ZYRTEC [Concomitant]

REACTIONS (8)
  - ABDOMINAL DISTENSION [None]
  - DIARRHOEA [None]
  - INJURY [None]
  - MUSCLE SPASMS [None]
  - NERVOUSNESS [None]
  - PNEUMONIA [None]
  - TREMOR [None]
  - URTICARIA [None]
